FAERS Safety Report 8343591 (Version 2)
Quarter: 2012Q4

REPORT INFORMATION
  Report Type: Report from Study
  Country: FR (occurrence: FR)
  Receive Date: 20120119
  Receipt Date: 20121213
  Transmission Date: 20130627
  Serious: Yes (Hospitalization, Other)
  Sender: FDA-Public Use
  Company Number: FR-ROCHE-1029273

PATIENT
  Age: 69 Year
  Sex: Male

DRUGS (8)
  1. RITUXIMAB [Suspect]
     Indication: CHRONIC LYMPHOCYTIC LEUKAEMIA
     Route: 041
     Dates: start: 20091001, end: 20091001
  2. RITUXIMAB [Suspect]
     Route: 041
     Dates: start: 20090629, end: 20091001
  3. CYCLOPHOSPHAMIDE [Suspect]
     Indication: CHRONIC LYMPHOCYTIC LEUKAEMIA
     Route: 041
     Dates: start: 20110801, end: 20110801
  4. FLUDARABINE [Suspect]
     Indication: CHRONIC LYMPHOCYTIC LEUKAEMIA
     Route: 065
     Dates: start: 20091001, end: 20091003
  5. ENDOXAN [Concomitant]
     Route: 065
     Dates: start: 20091001, end: 20091003
  6. ZELITREX [Concomitant]
     Route: 065
     Dates: start: 20090629
  7. PENTACARINAT [Concomitant]
     Route: 065
     Dates: start: 20091001
  8. ATENOLOL [Concomitant]

REACTIONS (2)
  - Squamous cell carcinoma [Not Recovered/Not Resolved]
  - Anaemia [Not Recovered/Not Resolved]
